FAERS Safety Report 8911430 (Version 3)
Quarter: 2013Q1

REPORT INFORMATION
  Report Type: Spontaneous
  Country: FR (occurrence: FR)
  Receive Date: 20121116
  Receipt Date: 20130130
  Transmission Date: 20140127
  Serious: Yes (Life-Threatening, Hospitalization, Other)
  Sender: FDA-Public Use
  Company Number: FR-JNJFOC-20121106026

PATIENT
  Age: 44 Year
  Sex: Male
  Weight: 68 kg

DRUGS (1)
  1. STELARA [Suspect]
     Indication: PSORIASIS
     Route: 058
     Dates: start: 20111104, end: 20120607

REACTIONS (1)
  - Hodgkin^s disease [Not Recovered/Not Resolved]
